FAERS Safety Report 4874862-8 (Version None)
Quarter: 2006Q1

REPORT INFORMATION
  Report Type: 
  Country: None (occurrence: None)
  Receive Date: 20060104
  Receipt Date: 20051222
  Transmission Date: 20060701
  Serious: Yes (Death)
  Sender: FDA-Public Use
  Company Number: HQWYE072716DEC05

PATIENT
  Sex: Male

DRUGS (1)
  1. PANTOLOLC (PANTOPRAZOLE, TABLET, DELAYED RELEASE) [Suspect]
     Indication: GASTROOESOPHAGEAL REFLUX DISEASE
     Dosage: ^MG^ ORAL
     Route: 048

REACTIONS (1)
  - DEATH [None]
